FAERS Safety Report 10078366 (Version 2)
Quarter: 2014Q2

REPORT INFORMATION
  Report Type: Spontaneous
  Country: US (occurrence: None)
  Receive Date: 20140327
  Receipt Date: 20140425
  Transmission Date: 20141212
  Serious: Yes (Hospitalization)
  Sender: FDA-Public Use
  Company Number: UTC-045311

PATIENT
  Age: 64 Year
  Sex: Female
  Weight: 81.8 kg

DRUGS (2)
  1. REMODULIN (5 MILLIGRAM/MILLITERS, INJECTION FOR INFUSION) (TREPROSTINIL SODIUM) [Suspect]
     Indication: COR PULMONALE CHRONIC
     Dosage: 34.56 UG/KG (0.024 UG/KG, 1 IN 1 MIN), SUBCUTANEOUS
     Dates: start: 20101224
  2. ADCIRCA (TADALAFIL) [Concomitant]

REACTIONS (6)
  - Disorientation [None]
  - Atrial fibrillation [None]
  - Dyspnoea [None]
  - Drug dose omission [None]
  - Lung infection [None]
  - Viral infection [None]
